FAERS Safety Report 7286289-2 (Version None)
Quarter: 2011Q1

REPORT INFORMATION
  Report Type: 
  Country: None (occurrence: None)
  Receive Date: 20110210
  Receipt Date: 20110208
  Transmission Date: 20110831
  Serious: Yes (Death)
  Sender: FDA-Public Use
  Company Number: KR-EISAI INC-E2020-08537-SPO-KR

PATIENT
  Age: 65 Year
  Sex: Female
  Weight: 58 kg

DRUGS (4)
  1. VALPROATE SODIUM [Concomitant]
     Indication: EPILEPSY
     Dosage: 1000 MG
     Route: 048
     Dates: start: 20100101
  2. CANDESARTAN CILEXETIL [Concomitant]
     Indication: HYPERTENSION
     Dosage: 4 MG
     Route: 048
     Dates: start: 20100101
  3. ACETYL-L-CARNITINE HCL [Concomitant]
     Dosage: 1500 MG
     Route: 048
     Dates: start: 20100101
  4. ARICEPT [Suspect]
     Indication: DEMENTIA
     Route: 048
     Dates: start: 20101108

REACTIONS (1)
  - SEPSIS [None]
